FAERS Safety Report 24404941 (Version 9)
Quarter: 2024Q4

REPORT INFORMATION
  Report Type: Spontaneous
  Country: US (occurrence: US)
  Receive Date: 20241007
  Receipt Date: 20241230
  Transmission Date: 20250114
  Serious: Yes (Other)
  Sender: PFIZER
  Company Number: US-PFIZER INC-202400269808

PATIENT
  Age: 14 Year
  Sex: Male

DRUGS (2)
  1. GENOTROPIN [Suspect]
     Active Substance: SOMATROPIN
     Indication: Failure to thrive
     Dosage: 1.8 MONDAY THROUGH SATURDAY WITH SUNDAY OFF UNLESS DOESN^T HAVE ENOUGH THEN GIVES ON SUNDAY
     Dates: start: 202303
  2. GENOTROPIN [Suspect]
     Active Substance: SOMATROPIN
     Indication: Immunisation
     Dosage: 1.8 MG, DAILY

REACTIONS (7)
  - Lower limb fracture [Unknown]
  - Sports injury [Unknown]
  - Ankle fracture [Unknown]
  - Fall [Unknown]
  - Device use error [Unknown]
  - Device breakage [Unknown]
  - Device material issue [Unknown]

NARRATIVE: CASE EVENT DATE: 20240701
